FAERS Safety Report 5191595-1 (Version None)
Quarter: 2006Q4

REPORT INFORMATION
  Report Type: 
  Country: None (occurrence: None)
  Receive Date: 20061219
  Receipt Date: 20061208
  Transmission Date: 20070319
  Serious: Yes (Other)
  Sender: FDA-Public Use
  Company Number: 2006152425

PATIENT
  Age: 3 Year
  Sex: Male

DRUGS (1)
  1. SUDAFED S.A. [Suspect]
     Indication: ACCIDENTAL EXPOSURE
     Dosage: HALF A BOTTLE ONCE (1 IN 1 D), ORAL
     Route: 048

REACTIONS (3)
  - ACCIDENTAL DRUG INTAKE BY CHILD [None]
  - INCORRECT DOSE ADMINISTERED [None]
  - SOMNOLENCE [None]
